FAERS Safety Report 23599497 (Version 1)
Quarter: 2024Q1

REPORT INFORMATION
  Report Type: Spontaneous
  Country: CN (occurrence: CN)
  Receive Date: 20240306
  Receipt Date: 20240306
  Transmission Date: 20240410
  Serious: Yes (Other)
  Sender: FDA-Public Use
  Company Number: CN-AMGEN-CHNSP2024042731

PATIENT

DRUGS (5)
  1. PEGFILGRASTIM [Suspect]
     Active Substance: PEGFILGRASTIM
     Indication: Haematopoietic stem cell mobilisation
     Dosage: 6 MILLIGRAM ON DAY 6
     Route: 065
  2. PEGFILGRASTIM [Suspect]
     Active Substance: PEGFILGRASTIM
     Indication: Off label use
  3. ETOPOSIDE [Concomitant]
     Active Substance: ETOPOSIDE
     Dosage: 75 MILLIGRAM/SQ. METER, ON DAYS 1-2
  4. CYTARABINE [Concomitant]
     Active Substance: CYTARABINE
     Dosage: 300 MILLIGRAM/SQ. METER, Q12H ON DAYS 1-2
  5. PLERIXAFOR [Concomitant]
     Active Substance: PLERIXAFOR

REACTIONS (10)
  - Plasma cell myeloma [Unknown]
  - Lymphoma [Unknown]
  - Neutropenia [Unknown]
  - Red blood cell transfusion [Unknown]
  - Haematotoxicity [Unknown]
  - Infection [Unknown]
  - Thrombocytopenia [Unknown]
  - Diarrhoea [Unknown]
  - Nausea [Unknown]
  - Off label use [Unknown]
